FAERS Safety Report 9377261 (Version 2)
Quarter: 2013Q3

REPORT INFORMATION
  Report Type: Spontaneous
  Country: JP (occurrence: JP)
  Receive Date: 20130701
  Receipt Date: 20130705
  Transmission Date: 20140515
  Serious: Yes (Hospitalization)
  Sender: FDA-Public Use
  Company Number: JP-ASTRAZENECA-2013SE49060

PATIENT
  Sex: 0

DRUGS (3)
  1. CRESTOR [Suspect]
     Route: 048
  2. XALACOM [Concomitant]
     Route: 065
  3. AIPHAGAN [Concomitant]
     Route: 065

REACTIONS (1)
  - Tendon rupture [Unknown]
